FAERS Safety Report 12530046 (Version 1)
Quarter: 2016Q3

REPORT INFORMATION
  Report Type: Spontaneous
  Country: DE (occurrence: DE)
  Receive Date: 20160706
  Receipt Date: 20160706
  Transmission Date: 20161109
  Serious: Yes (Other)
  Sender: FDA-Public Use
  Company Number: DE-AUROBINDO-AUR-APL-2016-08418

PATIENT
  Sex: Male
  Weight: 2.99 kg

DRUGS (2)
  1. LAMOTRIGINE. [Suspect]
     Active Substance: LAMOTRIGINE
     Dosage: 12 WEEKS AFTER DELIVERY, 575 MG, DAILY
     Route: 063
  2. LAMOTRIGINE. [Suspect]
     Active Substance: LAMOTRIGINE
     Indication: EPILEPSY
     Dosage: 150 MG, FOUR TIMES/DAY
     Route: 063

REACTIONS (5)
  - Anticonvulsant drug level above therapeutic [Recovered/Resolved]
  - Exposure during breast feeding [Unknown]
  - Hepatic enzyme increased [Unknown]
  - Abdominal pain [Unknown]
  - Eczema [Unknown]
